FAERS Safety Report 7194463-9 (Version None)
Quarter: 2010Q4

REPORT INFORMATION
  Report Type: 
  Country: None (occurrence: None)
  Receive Date: 20101223
  Receipt Date: 20101216
  Transmission Date: 20110411
  Serious: Yes (Hospitalization)
  Sender: FDA-Public Use
  Company Number: GB-ASTRAZENECA-2010SE59540

PATIENT
  Sex: Female

DRUGS (2)
  1. XYLOCAINE [Suspect]
     Indication: ANAESTHESIA
     Route: 049
  2. LIDOCAINE HYDROCHLORIDE [Suspect]
     Indication: ANAESTHESIA

REACTIONS (2)
  - DEPRESSED LEVEL OF CONSCIOUSNESS [None]
  - DYSKINESIA [None]
